FAERS Safety Report 9723138 (Version 1)
Quarter: 2013Q4

REPORT INFORMATION
  Report Type: Spontaneous
  Country: TR (occurrence: None)
  Receive Date: 20131126
  Receipt Date: 20131126
  Transmission Date: 20140711
  Serious: Yes (Hospitalization)
  Sender: FDA-Public Use
  Company Number: B0947016A

PATIENT
  Age: 37 Year
  Sex: Female

DRUGS (5)
  1. QUETIAPINE FUMARATE [Suspect]
     Indication: BIPOLAR DISORDER
     Dosage: UNK / UNK / UNKNOWN
  2. LAMOTRIGINE [Suspect]
     Indication: BIPOLAR DISORDER
  3. VALPROIC ACID [Concomitant]
  4. LITHIUM SALT [Concomitant]
  5. ARIPIPRAZOLE [Concomitant]

REACTIONS (11)
  - Drug reaction with eosinophilia and systemic symptoms [None]
  - Muscle rigidity [None]
  - Bradykinesia [None]
  - Hepatomegaly [None]
  - Resting tremor [None]
  - Lymphocyte morphology abnormal [None]
  - Epstein-Barr virus infection [None]
  - Gait disturbance [None]
  - Masked facies [None]
  - Inappropriate antidiuretic hormone secretion [None]
  - Encephalitis [None]
